FAERS Safety Report 8361149-4 (Version None)
Quarter: 2012Q2

REPORT INFORMATION
  Report Type: 
  Country: None (occurrence: None)
  Receive Date: 20120515
  Receipt Date: 20120430
  Transmission Date: 20120825
  Serious: Yes (Hospitalization)
  Sender: FDA-Public Use
  Company Number: SA-WATSON-2012-07621

PATIENT
  Age: 33 Year
  Sex: Female

DRUGS (3)
  1. PHENYTOIN [Suspect]
     Indication: CONVULSION
     Dosage: UNK
     Route: 065
  2. LEVETIRACETAM [Suspect]
     Indication: CONVULSION
     Dosage: 500 MG, DAILY
     Route: 065
  3. LAMOTRIGINE [Suspect]
     Indication: CONVULSION
     Dosage: 200 MG, DAILY
     Route: 065

REACTIONS (2)
  - RASH MACULO-PAPULAR [None]
  - ANGIOEDEMA [None]
